FAERS Safety Report 10191342 (Version 2)
Quarter: 2014Q2

REPORT INFORMATION
  Report Type: Spontaneous
  Country: IT (occurrence: GB)
  Receive Date: 20140523
  Receipt Date: 20140603
  Transmission Date: 20141212
  Serious: Yes (Other)
  Sender: FDA-Public Use
  Company Number: IT-PFIZER INC-2014140775

PATIENT
  Age: 18 Year
  Sex: Male

DRUGS (9)
  1. MORPHINE SULFATE [Suspect]
     Indication: PROCEDURAL PAIN
     Dosage: 60 MG, UNK
     Route: 048
  2. MORPHINE SULFATE [Suspect]
     Indication: PREOPERATIVE CARE
     Dosage: 15 MG, UNK
     Route: 048
  3. MORPHINE SULFATE [Suspect]
     Dosage: 10 MG, UNK
     Route: 048
  4. MORPHINE SULFATE [Suspect]
     Dosage: 50 MG, UNK
  5. MORPHINE SULFATE [Suspect]
     Dosage: 3 MG, UNK
     Route: 042
  6. TRAMADOL HCL [Suspect]
     Indication: PROCEDURAL PAIN
     Dosage: 100 MG, PRN
  7. TRAMADOL HCL [Suspect]
     Dosage: 100 MG, UNK
     Route: 065
  8. HYDROCORTISONE SODIUM SUCCINATE [Suspect]
     Indication: HYPOPITUITARISM
     Dosage: UNK
  9. CODEINE [Suspect]
     Indication: PAIN
     Dosage: 30 MG, QID

REACTIONS (1)
  - Adrenal insufficiency [Recovered/Resolved]
